FAERS Safety Report 6580723-9 (Version None)
Quarter: 2010Q1

REPORT INFORMATION
  Report Type: 
  Country: None (occurrence: None)
  Receive Date: 20100212
  Receipt Date: 20100208
  Transmission Date: 20100710
  Serious: Yes (Death)
  Sender: FDA-Public Use
  Company Number: US-ABBOTT-09P-163-0610560-00

PATIENT
  Age: 81 Year
  Sex: Female

DRUGS (10)
  1. CLARITHROMYCIN [Suspect]
     Indication: GASTRIC ULCER
     Dates: start: 20091022, end: 20091023
  2. CLARITHROMYCIN [Suspect]
     Indication: HELICOBACTER INFECTION
  3. PREVACID [Suspect]
     Indication: GASTRIC ULCER
     Dates: start: 20091022, end: 20091023
  4. PREVACID [Suspect]
     Indication: HELICOBACTER INFECTION
  5. AMOXICILLIN [Suspect]
     Indication: GASTRIC ULCER
     Dates: start: 20091022, end: 20091023
  6. AMOXICILLIN [Suspect]
     Indication: HELICOBACTER INFECTION
  7. ELAVIL [Concomitant]
     Indication: DEPRESSION
     Route: 048
  8. NORVASC [Concomitant]
     Indication: HYPERTENSION
     Route: 048
  9. ZOCOR [Concomitant]
     Indication: BLOOD CHOLESTEROL
     Route: 048
  10. COLACE [Concomitant]
     Indication: CONSTIPATION
     Route: 048

REACTIONS (1)
  - RESPIRATORY DISTRESS [None]
